FAERS Safety Report 13597837 (Version 5)
Quarter: 2017Q3

REPORT INFORMATION
  Report Type: Spontaneous
  Country: GB (occurrence: GB)
  Receive Date: 20170531
  Receipt Date: 20170911
  Transmission Date: 20171127
  Serious: Yes (Other)
  Sender: FDA-Public Use
  Company Number: GB-AMGEN-GBRSP2017080826

PATIENT
  Age: 53 Year
  Sex: Male
  Weight: 69 kg

DRUGS (3)
  1. ARANESP [Suspect]
     Active Substance: DARBEPOETIN ALFA
     Dosage: 150 MCG, QWK
     Route: 058
     Dates: start: 201611, end: 20170408
  2. ARANESP [Suspect]
     Active Substance: DARBEPOETIN ALFA
     Indication: CHRONIC KIDNEY DISEASE
     Dosage: 120 MCG, QWK
     Route: 058
     Dates: start: 2014
  3. ARANESP [Suspect]
     Active Substance: DARBEPOETIN ALFA
     Indication: NEPHROGENIC ANAEMIA
     Dosage: 120 MCG, Q2WK
     Route: 058
     Dates: start: 20140121

REACTIONS (1)
  - Reticulocyte count decreased [Not Recovered/Not Resolved]
